FAERS Safety Report 5193951-4 (Version None)
Quarter: 2006Q4

REPORT INFORMATION
  Report Type: 
  Country: None (occurrence: None)
  Receive Date: 20061228
  Receipt Date: 20060918
  Transmission Date: 20070319
  Serious: Yes (Life-Threatening, Hospitalization, Other)
  Sender: FDA-Public Use
  Company Number: IE-MERCK-0609GBR00079

PATIENT
  Age: 31 Year
  Sex: Male
  Weight: 71 kg

DRUGS (18)
  1. CANCIDAS [Suspect]
     Indication: SEPSIS
     Route: 051
     Dates: start: 20060908, end: 20060918
  2. AMLODIPINE BESYLATE [Concomitant]
     Indication: HYPERTENSION
     Route: 065
     Dates: start: 20060912
  3. PENICILLIN G [Concomitant]
     Indication: ENDOCARDITIS
     Route: 065
     Dates: start: 20060831
  4. CLONIDINE [Concomitant]
     Indication: AGITATION
     Route: 065
     Dates: start: 20060912
  5. CLONIDINE [Concomitant]
     Indication: HYPERTENSION
     Route: 065
     Dates: start: 20060912
  6. DESMOPRESSIN [Concomitant]
     Indication: COAGULOPATHY
     Route: 042
     Dates: start: 20060905
  7. ESOMEPRAZOLE [Concomitant]
     Indication: ANTACID THERAPY
     Route: 065
     Dates: start: 20060915
  8. FOLINIC ACID [Concomitant]
     Indication: THROMBOCYTOPENIA
     Route: 042
     Dates: start: 20060825
  9. METOCLOPRAMIDE [Concomitant]
     Indication: PROPHYLAXIS OF NAUSEA AND VOMITING
     Route: 065
     Dates: start: 20060824
  10. TRANEXAMIC ACID [Concomitant]
     Route: 042
     Dates: start: 20060915
  11. CIPROFLOXACIN [Concomitant]
     Indication: INFECTION
     Route: 042
     Dates: start: 20060906, end: 20060918
  12. DIHYDROCODEINE [Concomitant]
     Indication: PAIN
     Route: 065
     Dates: start: 20060915, end: 20060925
  13. DOXAZOSIN MESYLATE [Concomitant]
     Indication: HYPERTENSION
     Route: 065
     Dates: start: 20060914
  14. GENTAMICIN [Concomitant]
     Indication: ENDOCARDITIS
     Route: 042
     Dates: start: 20060907, end: 20060915
  15. METHYLPREDNISOLONE [Concomitant]
     Indication: STEROID THERAPY
     Route: 042
     Dates: start: 20060914, end: 20060901
  16. METHYLPREDNISOLONE [Concomitant]
     Route: 042
     Dates: start: 20060901
  17. OLANZAPINE [Concomitant]
     Indication: AGITATION
     Route: 065
     Dates: start: 20060913, end: 20060901
  18. OLANZAPINE [Concomitant]
     Route: 065
     Dates: start: 20060901

REACTIONS (2)
  - ATRIOVENTRICULAR BLOCK [None]
  - CARDIAC ARREST [None]
